FAERS Safety Report 8150685-1 (Version None)
Quarter: 2012Q1

REPORT INFORMATION
  Report Type: 
  Country: None (occurrence: None)
  Receive Date: 20120220
  Receipt Date: 20120214
  Transmission Date: 20120608
  Serious: Yes (Life-Threatening)
  Sender: FDA-Public Use
  Company Number: PHEH2012US003018

PATIENT

DRUGS (1)
  1. SANDOSTATIN LAR [Suspect]
     Indication: ACROMEGALY

REACTIONS (6)
  - FEELING ABNORMAL [None]
  - PAIN [None]
  - DIZZINESS [None]
  - MALAISE [None]
  - SWELLING [None]
  - ANXIETY [None]
